FAERS Safety Report 9942771 (Version 1)
Quarter: 2014Q1

REPORT INFORMATION
  Report Type: Report from Study
  Country: US (occurrence: US)
  Receive Date: 20140303
  Receipt Date: 20140303
  Transmission Date: 20141002
  Serious: No
  Sender: FDA-Public Use
  Company Number: US-ABBVIE-13P-163-1045525-00

PATIENT
  Age: 57 Year
  Sex: Female

DRUGS (5)
  1. HUMIRA [Suspect]
     Indication: CROHN^S DISEASE
     Dates: start: 20130110, end: 20130110
  2. HUMIRA [Suspect]
     Dates: start: 20130124
  3. AMLODIPINE [Concomitant]
     Indication: BLOOD PRESSURE
  4. HCTZ [Concomitant]
     Indication: BLOOD PRESSURE
  5. TRAVATAN [Concomitant]
     Indication: BLOOD PRESSURE
     Dosage: AT NIGHT

REACTIONS (2)
  - Eczema [Not Recovered/Not Resolved]
  - Diarrhoea [Unknown]
